FAERS Safety Report 5854126-6 (Version None)
Quarter: 2008Q3

REPORT INFORMATION
  Report Type: 
  Country: None (occurrence: None)
  Receive Date: 20080822
  Receipt Date: 20080812
  Transmission Date: 20090109
  Serious: Yes (Hospitalization)
  Sender: FDA-Public Use
  Company Number: US-BRISTOL-MYERS SQUIBB COMPANY-14310395

PATIENT
  Age: 45 Year
  Sex: Female

DRUGS (2)
  1. CYCLOPHOSPHAMIDE [Suspect]
     Indication: BREAST CANCER STAGE I
     Dosage: 1ST CYCLE ON 11SEP07 600MG/M2 IV, 2ND CYCLE ON 04OCT07 1020 MG EVERY 3 WEEKS.
     Route: 042
     Dates: start: 20071008, end: 20071008
  2. TAXOTERE [Suspect]
     Dates: start: 20070911, end: 20071008

REACTIONS (1)
  - DIVERTICULITIS [None]
